FAERS Safety Report 13448180 (Version 1)
Quarter: 2017Q2

REPORT INFORMATION
  Report Type: Spontaneous
  Country: GB (occurrence: GB)
  Receive Date: 20170417
  Receipt Date: 20170417
  Transmission Date: 20170830
  Serious: Yes (Hospitalization, Other)
  Sender: FDA-Public Use
  Company Number: GB-MYLANLABS-2017M1022595

PATIENT

DRUGS (9)
  1. DOXAZOSIN [Concomitant]
     Active Substance: DOXAZOSIN\DOXAZOSIN MESYLATE
  2. HYDROXOCOBALAMIN [Concomitant]
     Active Substance: HYDROXOCOBALAMIN
     Dosage: 1MG/1ML
  3. METFORMIN [Concomitant]
     Active Substance: METFORMIN HYDROCHLORIDE
  4. AMOXICILLIN. [Concomitant]
     Active Substance: AMOXICILLIN
  5. LOSARTAN. [Suspect]
     Active Substance: LOSARTAN
  6. FUROSEMIDE. [Suspect]
     Active Substance: FUROSEMIDE
  7. LERCANIDIPINE [Concomitant]
     Active Substance: LERCANIDIPINE
  8. WARFARIN [Concomitant]
     Active Substance: WARFARIN
  9. COCODAMOL [Concomitant]
     Active Substance: ACETAMINOPHEN\CODEINE PHOSPHATE
     Dosage: 30MG/500MG

REACTIONS (3)
  - Acute kidney injury [Unknown]
  - Hypophagia [Unknown]
  - Malaise [Unknown]
